FAERS Safety Report 11469594 (Version 1)
Quarter: 2015Q3

REPORT INFORMATION
  Report Type: Spontaneous
  Country: US (occurrence: US)
  Receive Date: 20150908
  Receipt Date: 20150908
  Transmission Date: 20151125
  Serious: Yes (Other)
  Sender: FDA-Public Use
  Company Number: US-PFIZER INC-2015293784

PATIENT
  Age: 75 Year
  Sex: Male
  Weight: 113.38 kg

DRUGS (1)
  1. REVATIO [Suspect]
     Active Substance: SILDENAFIL CITRATE
     Indication: PULMONARY HYPERTENSION
     Dosage: 20 MG, 3X/DAY
     Dates: start: 2013

REACTIONS (2)
  - Condition aggravated [Not Recovered/Not Resolved]
  - Aortic aneurysm [Not Recovered/Not Resolved]

NARRATIVE: CASE EVENT DATE: 201505
